FAERS Safety Report 17983036 (Version 1)
Quarter: 2020Q3

REPORT INFORMATION
  Report Type: Spontaneous
  Country: US (occurrence: US)
  Receive Date: 20200706
  Receipt Date: 20200706
  Transmission Date: 20201103
  Serious: No
  Sender: FDA-Public Use
  Company Number: US-PFIZER INC-2020256443

PATIENT
  Age: 54 Year
  Sex: Male

DRUGS (1)
  1. MULTIVITAMINS [Suspect]
     Active Substance: VITAMINS
     Dosage: UNK

REACTIONS (3)
  - Depression [Unknown]
  - Paranoia [Unknown]
  - Anxiety [Unknown]
